FAERS Safety Report 5961168-9 (Version None)
Quarter: 2008Q4

REPORT INFORMATION
  Report Type: 
  Country: None (occurrence: None)
  Receive Date: 20081121
  Receipt Date: 20081111
  Transmission Date: 20090506
  Serious: Yes (Other)
  Sender: FDA-Public Use
  Company Number: US-WYE-H06824408

PATIENT
  Age: 60 Year
  Sex: Female

DRUGS (4)
  1. PRISTIQ [Suspect]
     Indication: MAJOR DEPRESSION
     Route: 048
     Dates: start: 20081013, end: 20081027
  2. METOPROLOL TARTRATE [Concomitant]
     Dosage: UNKNOWN
  3. XANAX [Concomitant]
     Dosage: PRN DOSE UNSPECIFIED
  4. SYNTHROID [Concomitant]
     Dosage: UNKNOWN

REACTIONS (1)
  - HEPATITIS B [None]
